FAERS Safety Report 20872460 (Version 1)
Quarter: 2022Q2

REPORT INFORMATION
  Report Type: Spontaneous
  Country: CN (occurrence: CN)
  Receive Date: 20220525
  Receipt Date: 20220525
  Transmission Date: 20220720
  Serious: Yes (Other)
  Sender: FDA-Public Use
  Company Number: CN-PFIZER INC-202200708391

PATIENT
  Age: 53 Year
  Sex: Female
  Weight: 67.5 kg

DRUGS (6)
  1. EPIRUBICIN HYDROCHLORIDE [Suspect]
     Active Substance: EPIRUBICIN HYDROCHLORIDE
     Indication: Neoplasm
     Dosage: 80 MG, 1X/DAY
     Route: 041
     Dates: start: 20220411, end: 20220411
  2. EPIRUBICIN HYDROCHLORIDE [Suspect]
     Active Substance: EPIRUBICIN HYDROCHLORIDE
     Indication: Chemotherapy
  3. IFOSFAMIDE [Concomitant]
     Active Substance: IFOSFAMIDE
     Indication: Neoplasm
     Dosage: 2 G, 1X/DAY
     Route: 041
     Dates: start: 20220411, end: 20220414
  4. IFOSFAMIDE [Concomitant]
     Active Substance: IFOSFAMIDE
     Indication: Chemotherapy
  5. CISPLATIN [Concomitant]
     Active Substance: CISPLATIN
     Indication: Neoplasm
     Dosage: 20 MG, 1X/DAY
     Route: 041
     Dates: start: 20220412, end: 20220414
  6. CISPLATIN [Concomitant]
     Active Substance: CISPLATIN
     Indication: Chemotherapy

REACTIONS (5)
  - Myelosuppression [Recovering/Resolving]
  - Abdominal pain [Recovering/Resolving]
  - Nausea [Recovering/Resolving]
  - Vomiting [Recovering/Resolving]
  - Asthenia [Recovering/Resolving]

NARRATIVE: CASE EVENT DATE: 20220414
